FAERS Safety Report 9750853 (Version 2)
Quarter: 2013Q4

REPORT INFORMATION
  Report Type: Report from Study
  Country: AU (occurrence: AU)
  Receive Date: 20131212
  Receipt Date: 20131212
  Transmission Date: 20140711
  Serious: Yes (Death, Hospitalization)
  Sender: FDA-Public Use
  Company Number: AU-CELGENEUS-008-50794-13073791

PATIENT
  Age: 66 Year
  Sex: Male
  Weight: 75.3 kg

DRUGS (15)
  1. VIDAZA [Suspect]
     Indication: MYELODYSPLASTIC SYNDROME
     Dosage: X 5 DAYS
     Route: 058
     Dates: start: 20130402
  2. VIDAZA [Suspect]
     Dosage: 75 MILLIGRAM/SQ. METER
     Route: 058
     Dates: start: 20130611, end: 20130615
  3. ELTROMBOPAG [Suspect]
     Indication: MYELODYSPLASTIC SYNDROME
     Dosage: 300 MILLIGRAM
     Route: 065
     Dates: start: 20130402, end: 20130829
  4. PLATELETS [Concomitant]
     Indication: PRODUCT USED FOR UNKNOWN INDICATION
     Route: 065
  5. TIMENTIN [Concomitant]
     Indication: PRODUCT USED FOR UNKNOWN INDICATION
     Route: 065
     Dates: end: 20130717
  6. EXJADE [Concomitant]
     Indication: HAEMOCHROMATOSIS
     Dosage: 1500 MILLIGRAM
     Route: 065
  7. MIRTAZAPINE [Concomitant]
     Indication: DEPRESSION
     Route: 048
     Dates: start: 20130720
  8. CHLORVESCENT [Concomitant]
     Indication: PRODUCT USED FOR UNKNOWN INDICATION
     Route: 048
     Dates: start: 201307
  9. POSACONAZOLE [Concomitant]
     Indication: ANTIBIOTIC PROPHYLAXIS
     Dosage: 15 MILLILITER
     Route: 048
     Dates: start: 20130720
  10. POSACONAZOLE [Concomitant]
     Route: 065
     Dates: start: 201302, end: 20130828
  11. METOPROLOL [Concomitant]
     Indication: PRODUCT USED FOR UNKNOWN INDICATION
     Dosage: 50 MILLIGRAM
     Route: 048
     Dates: start: 20130720
  12. RED BLOOD CELLS [Concomitant]
     Indication: PRODUCT USED FOR UNKNOWN INDICATION
     Route: 065
     Dates: start: 20130721, end: 20130721
  13. CSL [Concomitant]
     Indication: PRODUCT USED FOR UNKNOWN INDICATION
     Route: 065
     Dates: start: 20130721
  14. VALACICLOVIR [Concomitant]
     Indication: ANTIVIRAL PROPHYLAXIS
     Route: 065
     Dates: start: 201302, end: 20130828
  15. FILGRASTIM [Concomitant]
     Indication: NEUTROPENIA
     Route: 058
     Dates: start: 20130422, end: 20130819

REACTIONS (2)
  - Febrile neutropenia [Fatal]
  - Febrile neutropenia [Recovered/Resolved with Sequelae]
